FAERS Safety Report 14562296 (Version 1)
Quarter: 2018Q1

REPORT INFORMATION
  Report Type: Spontaneous
  Country: US (occurrence: US)
  Receive Date: 20180221
  Receipt Date: 20180221
  Transmission Date: 20180509
  Serious: Yes (Death)
  Sender: FDA-Public Use
  Company Number: None

PATIENT
  Sex: Female
  Weight: 63 kg

DRUGS (1)
  1. SINGULAIR [Suspect]
     Active Substance: MONTELUKAST SODIUM
     Dates: start: 2016, end: 201705

REACTIONS (3)
  - Anxiety [None]
  - Depression [None]
  - Completed suicide [None]

NARRATIVE: CASE EVENT DATE: 20170513
